FAERS Safety Report 7908933-6 (Version None)
Quarter: 2011Q4

REPORT INFORMATION
  Report Type: 
  Country: None (occurrence: None)
  Receive Date: 20111108
  Receipt Date: 20111025
  Transmission Date: 20120403
  Serious: Yes (Other)
  Sender: FDA-Public Use
  Company Number: CY-1188733

PATIENT
  Age: 70 Year
  Sex: Male

DRUGS (1)
  1. NEVANAC [Suspect]
     Indication: KERATITIS HERPETIC
     Dosage: (OPHTHALMIC)
     Route: 047
     Dates: start: 20101020, end: 20101025

REACTIONS (3)
  - CORNEAL PERFORATION [None]
  - OFF LABEL USE [None]
  - DISEASE PROGRESSION [None]
